FAERS Safety Report 24056300 (Version 1)
Quarter: 2024Q3

REPORT INFORMATION
  Report Type: Spontaneous
  Country: CN (occurrence: None)
  Receive Date: 20240705
  Receipt Date: 20240705
  Transmission Date: 20241017
  Serious: Yes (Other)
  Sender: ASTRAZENECA
  Company Number: 2024A152778

PATIENT
  Age: 18197 Day
  Sex: Female
  Weight: 55 kg

DRUGS (2)
  1. OLAPARIB [Suspect]
     Active Substance: OLAPARIB
     Indication: Symptomatic treatment
     Route: 048
     Dates: start: 20240410, end: 20240516
  2. RIVOCERANIB [Concomitant]
     Active Substance: RIVOCERANIB
     Route: 048

REACTIONS (1)
  - Myelosuppression [Unknown]

NARRATIVE: CASE EVENT DATE: 20240516
